FAERS Safety Report 25995642 (Version 1)
Quarter: 2025Q4

REPORT INFORMATION
  Report Type: Spontaneous
  Country: EU (occurrence: EU)
  Receive Date: 20251104
  Receipt Date: 20251104
  Transmission Date: 20260118
  Serious: Yes (Hospitalization, Other)
  Sender: SANDOZ
  Company Number: EU-STADA-01466354

PATIENT
  Age: 43 Year
  Sex: Female

DRUGS (8)
  1. BEVACIZUMAB [Suspect]
     Active Substance: BEVACIZUMAB
     Dosage: MONOTHERAPY
     Route: 065
  2. BEVACIZUMAB [Suspect]
     Active Substance: BEVACIZUMAB
     Indication: Glioblastoma
     Dosage: SCHEDULED FOR 7 CYCLES
     Route: 065
  3. FOTEMUSTINE [Suspect]
     Active Substance: FOTEMUSTINE
     Indication: Glioblastoma
     Dosage: THIRD-LINE TREATMENT
     Route: 065
  4. ZOLEDRONIC ACID [Suspect]
     Active Substance: ZOLEDRONIC ACID
     Indication: Glioblastoma
     Dosage: UNK
     Route: 065
  5. CABERGOLINE [Concomitant]
     Active Substance: CABERGOLINE
     Indication: Hyperprolactinaemia
     Dosage: UNK
     Route: 065
  6. IRINOTECAN [Concomitant]
     Active Substance: IRINOTECAN
     Indication: Glioblastoma
     Dosage: SCHEDULED FOR 7 CYCLES
     Route: 065
  7. TEMOZOLOMIDE [Concomitant]
     Active Substance: TEMOZOLOMIDE
     Dosage: ADJUVANT
     Route: 065
  8. TEMOZOLOMIDE [Concomitant]
     Active Substance: TEMOZOLOMIDE
     Indication: Glioblastoma
     Dosage: CONCURRENT TO RADIOTHERAPY
     Route: 065

REACTIONS (3)
  - Haematotoxicity [Unknown]
  - Hypersensitivity [Unknown]
  - Drug ineffective [Unknown]
